FAERS Safety Report 7472994-1 (Version None)
Quarter: 2011Q2

REPORT INFORMATION
  Report Type: 
  Country: None (occurrence: None)
  Receive Date: 20110511
  Receipt Date: 20110429
  Transmission Date: 20111010
  Serious: Yes (Other)
  Sender: FDA-Public Use
  Company Number: PHHY2011US36490

PATIENT
  Sex: Male
  Weight: 104.31 kg

DRUGS (1)
  1. GLEEVEC [Suspect]
     Indication: LEUKAEMIA
     Dosage: 400 MG, QD
     Route: 048
     Dates: start: 20090101

REACTIONS (5)
  - THROAT TIGHTNESS [None]
  - LARYNGEAL MASS [None]
  - DYSPHONIA [None]
  - RALES [None]
  - NAUSEA [None]
